FAERS Safety Report 23369308 (Version 1)
Quarter: 2024Q1

REPORT INFORMATION
  Report Type: Spontaneous
  Country: FR (occurrence: FR)
  Receive Date: 20240105
  Receipt Date: 20240105
  Transmission Date: 20240410
  Serious: Yes (Death, Other)
  Sender: FDA-Public Use
  Company Number: FR-AFSSAPS-LM2023000720

PATIENT
  Sex: Male

DRUGS (2)
  1. EPHEDRINE [Suspect]
     Active Substance: EPHEDRINE
     Indication: Resuscitation
     Dosage: 5 MILLILITER
     Route: 042
     Dates: start: 20231031
  2. EPINEPHRINE [Suspect]
     Active Substance: EPINEPHRINE
     Indication: Resuscitation
     Dosage: UNK
     Route: 042
     Dates: start: 20231031

REACTIONS (2)
  - Cardio-respiratory arrest [Fatal]
  - Product preparation error [Fatal]

NARRATIVE: CASE EVENT DATE: 20231031
